FAERS Safety Report 6651031-2 (Version None)
Quarter: 2010Q1

REPORT INFORMATION
  Report Type: 
  Country: None (occurrence: None)
  Receive Date: 20100323
  Receipt Date: 20100310
  Transmission Date: 20100710
  Serious: Yes (Hospitalization)
  Sender: FDA-Public Use
  Company Number: 232568J10USA

PATIENT
  Age: 42 Year
  Sex: Female

DRUGS (3)
  1. REBIF [Suspect]
     Indication: MULTIPLE SCLEROSIS
     Dosage: 22 MCG, SUBCUTANEOUS; 44 MCG, 3 IN 1 WEEKS, SUBCUTANEOUS
     Route: 058
     Dates: end: 20100101
  2. REBIF [Suspect]
     Indication: MULTIPLE SCLEROSIS
     Dosage: 22 MCG, SUBCUTANEOUS; 44 MCG, 3 IN 1 WEEKS, SUBCUTANEOUS
     Route: 058
     Dates: start: 20080915
  3. TYLENOL [Concomitant]

REACTIONS (6)
  - FEELING HOT [None]
  - FOOD POISONING [None]
  - IMPAIRED GASTRIC EMPTYING [None]
  - IRRITABLE BOWEL SYNDROME [None]
  - PANIC ATTACK [None]
  - WEIGHT DECREASED [None]
